FAERS Safety Report 6692670-2 (Version None)
Quarter: 2010Q2

REPORT INFORMATION
  Report Type: 
  Country: None (occurrence: None)
  Receive Date: 20100422
  Receipt Date: 20100412
  Transmission Date: 20101027
  Serious: Yes (Other)
  Sender: FDA-Public Use
  Company Number: SI-PFIZER INC-2010043216

PATIENT
  Age: 47 Year
  Sex: Female
  Weight: 76.644 kg

DRUGS (7)
  1. LYRICA [Suspect]
     Indication: CHEST PAIN
     Dosage: 225 MG, 1X/DAY
     Route: 048
     Dates: start: 20100120, end: 20100410
  2. MODURETIC 5-50 [Concomitant]
     Dosage: 5 MG, UNK
  3. FUROSEMIDE [Concomitant]
     Dosage: 10 MG, WEEKLY
     Route: 048
  4. VOLTAREN [Concomitant]
     Indication: PAIN
     Dosage: UNK
     Route: 048
     Dates: start: 20100301
  5. PARACETAMOL [Concomitant]
     Dosage: AS NEEDED
  6. HELEX [Concomitant]
     Dosage: AS NEEDED
     Route: 048
  7. TRAMADOL ^GRUENENTHAL^ [Concomitant]
     Indication: PAIN
     Dosage: UNK
     Route: 048
     Dates: start: 20100101, end: 20100201

REACTIONS (4)
  - BLUE TOE SYNDROME [None]
  - HEART RATE INCREASED [None]
  - MENSTRUAL DISORDER [None]
  - OEDEMA PERIPHERAL [None]
